FAERS Safety Report 22199087 (Version 1)
Quarter: 2023Q2

REPORT INFORMATION
  Report Type: Other
  Country: DE (occurrence: DE)
  Receive Date: 20230411
  Receipt Date: 20230411
  Transmission Date: 20230721
  Serious: Yes (Death, Other)
  Sender: FDA-Public Use
  Company Number: DE-CELLTRION INC.-2023DE006964

PATIENT

DRUGS (3)
  1. INFLIXIMAB [Suspect]
     Active Substance: INFLIXIMAB
     Indication: Colitis ulcerative
     Dosage: 2.5 [MG/KG ]/ EVERY 4 WEEKS (ADDITIONAL INFORMATION: 19. - 32. GESTATIONAL WEEK)
     Route: 048
     Dates: start: 20220523, end: 20220822
  2. PREDNISOLONE [Suspect]
     Active Substance: PREDNISOLONE
     Indication: Colitis ulcerative
     Dosage: 7.5 [MG/D ] (ADDITIONAL INFORMATION: 19. - 33.1 GESTATIONAL WEEK)
     Route: 048
  3. MISOPROSTOL [Concomitant]
     Active Substance: MISOPROSTOL
     Indication: Labour induction
     Dosage: (ADDITIONAL INFORMATION: 33.1 - 33.2 GESTATIONAL WEEK)
     Route: 048
     Dates: start: 20220830, end: 20220831

REACTIONS (4)
  - Foetal death [Fatal]
  - Stillbirth [Fatal]
  - Exposure during pregnancy [Unknown]
  - Off label use [Unknown]
